FAERS Safety Report 6698703-1 (Version None)
Quarter: 2010Q2

REPORT INFORMATION
  Report Type: 
  Country: None (occurrence: None)
  Receive Date: 20100427
  Receipt Date: 20091116
  Transmission Date: 20101027
  Serious: No
  Sender: FDA-Public Use
  Company Number: US-ASTRAZENECA-2009SE20449

PATIENT
  Age: 44 Year
  Sex: Female
  Weight: 54.4 kg

DRUGS (1)
  1. ZOMIG [Suspect]
     Indication: MIGRAINE
     Route: 045
     Dates: start: 20060101

REACTIONS (2)
  - DRUG INEFFECTIVE [None]
  - MIGRAINE [None]
